FAERS Safety Report 5542130-7 (Version None)
Quarter: 2007Q4

REPORT INFORMATION
  Report Type: 
  Country: None (occurrence: None)
  Receive Date: 20071210
  Receipt Date: 20070419
  Transmission Date: 20080405
  Serious: No
  Sender: FDA-Public Use
  Company Number: US-AMGEN-US220695

PATIENT
  Sex: Male

DRUGS (3)
  1. ENBREL [Suspect]
     Indication: RHEUMATOID ARTHRITIS
     Route: 058
     Dates: start: 20061101
  2. ARAVA [Concomitant]
     Dates: start: 20050101
  3. TREXALL [Concomitant]
     Dates: start: 20050101

REACTIONS (1)
  - INJECTION SITE PAIN [None]
